FAERS Safety Report 16534095 (Version 1)
Quarter: 2019Q3

REPORT INFORMATION
  Report Type: Spontaneous
  Country: US (occurrence: US)
  Receive Date: 20190705
  Receipt Date: 20190705
  Transmission Date: 20191004
  Serious: No
  Sender: FDA-Public Use
  Company Number: US-009507513-1906USA010870

PATIENT
  Age: 72 Year
  Sex: Male
  Weight: 77.1 kg

DRUGS (19)
  1. AMANTADINE. [Suspect]
     Active Substance: AMANTADINE HYDROCHLORIDE
     Dosage: 274 MILLIGRAM, 1X/DAY AT BEDTIME
     Route: 048
     Dates: start: 20190105, end: 20190526
  2. AMANTADINE. [Suspect]
     Active Substance: AMANTADINE HYDROCHLORIDE
     Dosage: 137 MILLIGRAM, 1X/DAY  AT BEDTIME, FOR THE FIRST SEVEN DAYS
     Route: 048
     Dates: start: 20181229, end: 20190104
  3. TIZANIDINE HYDROCHLORIDE. [Concomitant]
     Active Substance: TIZANIDINE HYDROCHLORIDE
  4. FAMOTIDINE. [Concomitant]
     Active Substance: FAMOTIDINE
  5. PRAMIPEXOLE. [Suspect]
     Active Substance: PRAMIPEXOLE
     Dosage: 3 MILLIGRAM, 1X/DAY
     Dates: start: 2019
  6. LORAZEPAM. [Suspect]
     Active Substance: LORAZEPAM
     Dosage: 0.5 MILLIGRAM, 2X/DAY
     Route: 048
  7. GABAPENTIN. [Concomitant]
     Active Substance: GABAPENTIN
  8. TAMSULOSIN HYDROCHLORIDE. [Concomitant]
     Active Substance: TAMSULOSIN HYDROCHLORIDE
  9. VENLAFAXINE HYDROCHLORIDE. [Concomitant]
     Active Substance: VENLAFAXINE HYDROCHLORIDE
  10. ADVIL [Concomitant]
     Active Substance: IBUPROFEN
  11. KETOCONAZOLE. [Concomitant]
     Active Substance: KETOCONAZOLE
  12. SINEMET [Suspect]
     Active Substance: CARBIDOPA\LEVODOPA
     Indication: PARKINSON^S DISEASE
     Dosage: 2 TABLETS, 5X/DAY
     Route: 048
  13. SINEMET CR [Suspect]
     Active Substance: CARBIDOPA\LEVODOPA
     Indication: PARKINSON^S DISEASE
     Dosage: UNK, 1X/DAY
     Route: 048
  14. LORAZEPAM. [Suspect]
     Active Substance: LORAZEPAM
     Dosage: 1 MILLIGRAM, 1X/DAY
     Route: 048
  15. XADAGO [Concomitant]
     Active Substance: SAFINAMIDE MESYLATE
  16. CYANOCOBALAMIN. [Concomitant]
     Active Substance: CYANOCOBALAMIN
     Indication: ROUTINE HEALTH MAINTENANCE
  17. SINEMET [Suspect]
     Active Substance: CARBIDOPA\LEVODOPA
     Indication: PARKINSON^S DISEASE
     Dosage: 1 TABLETS, 1X/DAY
     Route: 048
  18. AMANTADINE. [Suspect]
     Active Substance: AMANTADINE HYDROCHLORIDE
     Indication: DYSKINESIA
     Dosage: 274 MILLIGRAM, 1X/DAY AT BEDTIME
     Route: 048
     Dates: start: 20190528
  19. PRAMIPEXOLE. [Suspect]
     Active Substance: PRAMIPEXOLE
     Dosage: 3 MILLIGRAM, 1X/DAY
     Dates: end: 20190527

REACTIONS (6)
  - Dysarthria [Recovered/Resolved]
  - Tremor [Recovered/Resolved]
  - Product dose omission [Unknown]
  - Tongue disorder [Unknown]
  - Memory impairment [Not Recovered/Not Resolved]
  - Anxiety [Recovered/Resolved]

NARRATIVE: CASE EVENT DATE: 20190527
